FAERS Safety Report 6162101-X (Version None)
Quarter: 2009Q2

REPORT INFORMATION
  Report Type: 
  Country: None (occurrence: None)
  Receive Date: 20090421
  Receipt Date: 20090410
  Transmission Date: 20091009
  Serious: Yes (Other)
  Sender: FDA-Public Use
  Company Number: US-WYE-H08944109

PATIENT
  Sex: Female
  Weight: 70.37 kg

DRUGS (5)
  1. EFFEXOR [Suspect]
     Indication: ANXIETY
     Dosage: 75 MG, FREQUENCY NOT SPECIFIED
     Dates: start: 20020101
  2. EFFEXOR [Suspect]
     Indication: DEPRESSION
  3. PROTONIX [Concomitant]
     Dosage: UNKNOWN
  4. CHANTIX [Suspect]
     Indication: SMOKING CESSATION THERAPY
     Dates: start: 20080301
  5. CHANTIX [Suspect]
     Dates: start: 20080301, end: 20080101

REACTIONS (3)
  - AGGRESSION [None]
  - NAUSEA [None]
  - PARANOIA [None]
